FAERS Safety Report 8775347 (Version 3)
Quarter: 2012Q4

REPORT INFORMATION
  Report Type: 
  Country: US (occurrence: US)
  Receive Date: 20120910
  Receipt Date: 20120927
  Transmission Date: 20130627
  Serious: Yes (Hospitalization)
  Sender: FDA-Public Use
  Company Number: US-ASTRAZENECA-2012SE65528

PATIENT
  Age: 48 Year
  Sex: Female
  Weight: 59 kg

DRUGS (9)
  1. SEROQUEL [Suspect]
     Indication: BIPOLAR DISORDER
     Dosage: 400 MG DAILY DOSE 100 MG IN THE MORNING AND 300 MG AT NIGHT
     Route: 048
  2. SEROQUEL [Suspect]
     Indication: SLEEP DISORDER
     Dosage: 400 MG DAILY DOSE 100 MG IN THE MORNING AND 300 MG AT NIGHT
     Route: 048
  3. SEROQUEL [Suspect]
     Indication: BIPOLAR DISORDER
     Dosage: 1200  MG PER DAY
     Route: 048
     Dates: start: 2008
  4. SEROQUEL [Suspect]
     Indication: SLEEP DISORDER
     Dosage: 1200  MG PER DAY
     Route: 048
     Dates: start: 2008
  5. COGENTIN [Concomitant]
     Indication: MUSCLE TWITCHING
  6. NEURONTIN [Concomitant]
     Indication: ANXIETY
  7. NEURONTIN [Concomitant]
     Indication: ANXIETY
  8. ALBUTEROL [Concomitant]
     Indication: CHRONIC OBSTRUCTIVE PULMONARY DISEASE
     Dosage: 1 PUFF TID
  9. ALBUTEROL [Concomitant]
     Indication: CHRONIC OBSTRUCTIVE PULMONARY DISEASE
     Dosage: MININEB, DAILY AND AS REQUIRED

REACTIONS (16)
  - Blood pressure increased [Unknown]
  - Dehydration [Unknown]
  - Diarrhoea [Unknown]
  - Insomnia [Unknown]
  - Vomiting [Unknown]
  - Heart rate increased [Unknown]
  - Amnesia [Not Recovered/Not Resolved]
  - Tension [Not Recovered/Not Resolved]
  - Mobility decreased [Unknown]
  - Insomnia [Unknown]
  - Mental disorder [Unknown]
  - Asthenia [Unknown]
  - Restless legs syndrome [Not Recovered/Not Resolved]
  - Drug withdrawal syndrome [Unknown]
  - Drug dose omission [Unknown]
  - Off label use [Unknown]
